FAERS Safety Report 7536278-5 (Version None)
Quarter: 2011Q2

REPORT INFORMATION
  Report Type: 
  Country: None (occurrence: None)
  Receive Date: 20110602
  Receipt Date: 20110516
  Transmission Date: 20111010
  Serious: Yes (Other)
  Sender: FDA-Public Use
  Company Number: JP-ACCORD-009339

PATIENT
  Age: 72 Year
  Sex: Male

DRUGS (5)
  1. IRINOTECAN HCL [Suspect]
     Indication: COLORECTAL CANCER
  2. LEUCOVORIN (LEUCOVORIN) [Concomitant]
  3. OXALIPLATIN [Suspect]
     Indication: COLORECTAL CANCER
  4. BEVACIZUMAB (BEVACIZUMAB) [Suspect]
     Indication: COLORECTAL CANCER
  5. FLUOROURACIL [Suspect]
     Indication: COLORECTAL CANCER

REACTIONS (2)
  - SPLENOMEGALY [None]
  - THROMBOCYTOPENIA [None]
